FAERS Safety Report 14824712 (Version 1)
Quarter: 2018Q2

REPORT INFORMATION
  Report Type: Spontaneous
  Country: GB (occurrence: GB)
  Receive Date: 20180429
  Receipt Date: 20180429
  Transmission Date: 20180711
  Serious: Yes (Other)
  Sender: FDA-Public Use
  Company Number: GB-009507513-1804GBR011183

PATIENT
  Age: 76 Year
  Sex: Female

DRUGS (7)
  1. ALENDRONATE SODIUM. [Suspect]
     Active Substance: ALENDRONATE SODIUM
     Dosage: 70 MG, QW
     Route: 048
     Dates: start: 20171202
  2. EPROSARTAN [Concomitant]
     Active Substance: EPROSARTAN
     Dosage: 600 MG, QD
     Route: 048
  3. BENDROFLUMETHIAZIDE [Concomitant]
     Active Substance: BENDROFLUMETHIAZIDE
     Dosage: 2.5 MG, QD
     Route: 048
  4. TRIMETHOPRIM. [Concomitant]
     Active Substance: TRIMETHOPRIM
     Indication: PROPHYLAXIS URINARY TRACT INFECTION
     Dosage: 100 MG, QD
     Route: 048
  5. OMEPRAZOLE. [Concomitant]
     Active Substance: OMEPRAZOLE
     Dosage: 20 MG, QD
     Route: 048
  6. STEXEROL D3 [Concomitant]
     Dosage: 25000 IU, QM
     Route: 048
     Dates: start: 201711
  7. ACCRETE D3 [Concomitant]
     Dosage: 2 DF, QD
     Route: 048

REACTIONS (4)
  - Choking sensation [Unknown]
  - Laryngitis [Unknown]
  - Dysphagia [Unknown]
  - Dysphonia [Unknown]
